FAERS Safety Report 6692751-3 (Version None)
Quarter: 2010Q2

REPORT INFORMATION
  Report Type: 
  Country: None (occurrence: None)
  Receive Date: 20100422
  Receipt Date: 20100415
  Transmission Date: 20101027
  Serious: Yes (Other)
  Sender: FDA-Public Use
  Company Number: PHHY2010US17741

PATIENT
  Sex: Male

DRUGS (2)
  1. EXTAVIA [Suspect]
     Indication: MULTIPLE SCLEROSIS
     Dosage: 0.187 MG, QOD
     Route: 058
     Dates: start: 20100309
  2. EXTAVIA [Suspect]
     Dosage: UNK

REACTIONS (8)
  - APHASIA [None]
  - CEREBROVASCULAR ACCIDENT [None]
  - CHILLS [None]
  - DYSARTHRIA [None]
  - INFLUENZA LIKE ILLNESS [None]
  - INSOMNIA [None]
  - PAIN [None]
  - TRANSIENT ISCHAEMIC ATTACK [None]
